FAERS Safety Report 25840685 (Version 1)
Quarter: 2025Q3

REPORT INFORMATION
  Report Type: Spontaneous
  Country: CN (occurrence: CN)
  Receive Date: 20250924
  Receipt Date: 20250924
  Transmission Date: 20251020
  Serious: Yes (Other)
  Sender: ROCHE
  Company Number: CN-BoehringerIngelheim-2025-BI-096234

PATIENT
  Age: 78 Year
  Sex: Male
  Weight: 78.0 kg

DRUGS (3)
  1. ALTEPLASE [Suspect]
     Active Substance: ALTEPLASE
     Indication: Cerebral infarction
     Route: 042
     Dates: start: 20250907, end: 20250907
  2. ALTEPLASE [Suspect]
     Active Substance: ALTEPLASE
     Route: 042
     Dates: start: 20250907, end: 20250907
  3. PANTOPRAZOLE SODIUM I.V. [Concomitant]
     Active Substance: PANTOPRAZOLE SODIUM
     Indication: Cerebral infarction
     Route: 042
     Dates: start: 20250907, end: 20250908

REACTIONS (2)
  - Swollen tongue [Recovering/Resolving]
  - Chest discomfort [Recovering/Resolving]

NARRATIVE: CASE EVENT DATE: 20250907
